FAERS Safety Report 9007378 (Version 2)
Quarter: 2013Q1

REPORT INFORMATION
  Report Type: Spontaneous
  Country: US (occurrence: US)
  Receive Date: 20130110
  Receipt Date: 20130226
  Transmission Date: 20140127
  Serious: No
  Sender: FDA-Public Use
  Company Number: US-VERTEX PHARMACEUTICALS INC.-2013-000412

PATIENT
  Age: 53 Year
  Sex: Female
  Weight: 95 kg

DRUGS (17)
  1. INCIVEK [Suspect]
     Indication: HEPATITIS C
     Dosage: 750 MG, TID
     Route: 048
     Dates: start: 20121130
  2. RIBASPHERE [Suspect]
     Indication: HEPATITIS C
     Dosage: 600 MG, BID
     Route: 048
     Dates: start: 20121130
  3. PEGINTERFERON ALFA [Suspect]
     Indication: HEPATITIS C
     Dosage: 180 ?G, QW
     Route: 058
     Dates: start: 20121130
  4. AMLODIPINE BESYLATE [Concomitant]
     Dosage: 40 MG, QD
     Dates: start: 20130218
  5. CLOPIDOGREL BISULFATE [Concomitant]
     Dosage: 75 MG, UNK
     Dates: start: 20130218
  6. NEXIUM [Concomitant]
     Dosage: 40 MG, QD
     Route: 048
     Dates: start: 20130218
  7. ISOSORBIDE MONONITRATE [Concomitant]
     Dosage: 30 MG, QD
     Route: 048
     Dates: start: 20130218
  8. LEVOTHYROXINE SODIUM [Concomitant]
     Dosage: 75 MG, QD
     Route: 048
  9. LORATADINE [Concomitant]
     Dosage: 10 MG, QD
     Route: 048
  10. XANAX [Concomitant]
     Dosage: 0.5 MG, PRN
  11. MORPHINE SULFATE [Concomitant]
     Dosage: 15 MG, BID
     Route: 048
     Dates: start: 20130212
  12. QUETIAPINE FUMARATE [Concomitant]
     Dosage: 300 MG, UNK
     Route: 048
     Dates: start: 20130212
  13. REQUIP [Concomitant]
     Dosage: 0.5 MG, UNK
     Route: 048
  14. ZOLPIDEM TARTRATE [Concomitant]
     Dosage: 12.5 MG, UNK
     Dates: start: 20130125
  15. PREDNISONE [Concomitant]
     Dosage: 12.5 MG, UNK
     Route: 048
     Dates: start: 20130125
  16. ZINC [Concomitant]
     Dosage: 2 DF, UNK
     Dates: start: 20121213
  17. ASPIRIN [Concomitant]
     Dosage: 81 MG, QD
     Route: 048
     Dates: start: 20120927

REACTIONS (6)
  - Pyrexia [Unknown]
  - Excoriation [Unknown]
  - Oedema [Unknown]
  - Rash macular [Not Recovered/Not Resolved]
  - Pruritus [Not Recovered/Not Resolved]
  - Dysgeusia [Unknown]
